FAERS Safety Report 8272122-9 (Version None)
Quarter: 2012Q2

REPORT INFORMATION
  Report Type: 
  Country: None (occurrence: None)
  Receive Date: 20120410
  Receipt Date: 20120307
  Transmission Date: 20120825
  Serious: No
  Sender: FDA-Public Use
  Company Number: US-ASTRAZENECA-2011SE63942

PATIENT
  Age: 67 Year
  Sex: Male

DRUGS (5)
  1. TYLENOL (CAPLET) [Concomitant]
  2. VANDETANIB [Suspect]
     Indication: THYROID CANCER
     Route: 048
  3. LEVOTHYROXINE SODIUM [Concomitant]
  4. MEVACOR [Concomitant]
  5. WARFARIN SODIUM [Concomitant]

REACTIONS (5)
  - FATIGUE [None]
  - ARTHRALGIA [None]
  - ACNE [None]
  - EPISTAXIS [None]
  - RASH [None]
